FAERS Safety Report 17277567 (Version 2)
Quarter: 2020Q3

REPORT INFORMATION
  Report Type: Spontaneous
  Country: US (occurrence: US)
  Receive Date: 20200116
  Receipt Date: 20200805
  Transmission Date: 20201102
  Serious: No
  Sender: FDA-Public Use
  Company Number: US-TEVA-2019-US-1160873

PATIENT
  Age: 63 Year
  Sex: Female
  Weight: 72.57 kg

DRUGS (12)
  1. SINGULAIR [Concomitant]
     Active Substance: MONTELUKAST SODIUM
     Route: 065
  2. METFORMIN [Concomitant]
     Active Substance: METFORMIN HYDROCHLORIDE
     Route: 065
  3. AUSTEDO [Suspect]
     Active Substance: DEUTETRABENAZINE
     Indication: TARDIVE DYSKINESIA
     Dosage: 24 MILLIGRAM DAILY; AUSTEDO FIRST SHIPPED: 03/15/2019
     Route: 048
     Dates: start: 2019
  4. AUSTEDO [Suspect]
     Active Substance: DEUTETRABENAZINE
     Dosage: DOSE: 12 MG
     Route: 048
     Dates: start: 201901, end: 201911
  5. DULERA [Concomitant]
     Active Substance: FORMOTEROL FUMARATE DIHYDRATE\MOMETASONE FUROATE
     Dosage: PUFF, BID
     Route: 065
  6. NEURONTIN [Concomitant]
     Active Substance: GABAPENTIN
     Dosage: BID
     Route: 065
  7. CRESTOR [Concomitant]
     Active Substance: ROSUVASTATIN CALCIUM
     Route: 065
  8. OSTEOBIFLEX [Concomitant]
     Route: 065
  9. XOLAIR [Concomitant]
     Active Substance: OMALIZUMAB
     Route: 058
  10. LOSARTIN/HCT 50/12.5 [Concomitant]
     Route: 048
  11. PHENERGAN EXPECTORANT [Concomitant]
     Route: 065
  12. VITAMIN D [Concomitant]
     Active Substance: VITAMIN D NOS
     Dosage: 2000 U
     Route: 065

REACTIONS (5)
  - Weight decreased [Recovered/Resolved]
  - Anxiety [Not Recovered/Not Resolved]
  - Adverse event [Unknown]
  - Depression [Not Recovered/Not Resolved]
  - Nausea [Recovered/Resolved]

NARRATIVE: CASE EVENT DATE: 201903
